FAERS Safety Report 6942970-3 (Version None)
Quarter: 2010Q3

REPORT INFORMATION
  Report Type: 
  Country: None (occurrence: None)
  Receive Date: 20100824
  Receipt Date: 20100824
  Transmission Date: 20110219
  Serious: Yes (Other)
  Sender: FDA-Public Use
  Company Number: None

PATIENT
  Sex: Female
  Weight: 86.1834 kg

DRUGS (1)
  1. REGLAN [Suspect]
     Indication: EXCESSIVE EYE BLINKING
     Dosage: 1 TABLET 3 TIMES A DAY ORAL
     Route: 048

REACTIONS (2)
  - EXCESSIVE EYE BLINKING [None]
  - UNEVALUABLE EVENT [None]
